FAERS Safety Report 7070190-3 (Version None)
Quarter: 2010Q4

REPORT INFORMATION
  Report Type: 
  Country: None (occurrence: None)
  Receive Date: 20101028
  Receipt Date: 20100916
  Transmission Date: 20110411
  Serious: Yes (Other)
  Sender: FDA-Public Use
  Company Number: US-WYE-H17580710

PATIENT
  Sex: Male
  Weight: 77.18 kg

DRUGS (5)
  1. CORDARONE [Suspect]
     Indication: ATRIAL FIBRILLATION
     Route: 048
     Dates: start: 19920101
  2. COUMADIN [Suspect]
     Dosage: UNSPECIFIED
     Dates: start: 20060101
  3. METOPROLOL [Concomitant]
     Dosage: UNSPECIFIED
  4. OMEPRAZOLE [Concomitant]
     Dosage: UNSPECIFIED
  5. CYCLOPHOSPHAMIDE [Concomitant]
     Dosage: UNSPECIFIED

REACTIONS (3)
  - BLOOD CALCIUM DECREASED [None]
  - CONTUSION [None]
  - PHOTOSENSITIVITY REACTION [None]
